FAERS Safety Report 14559073 (Version 1)
Quarter: 2018Q1

REPORT INFORMATION
  Report Type: Report from Study
  Country: BR (occurrence: BR)
  Receive Date: 20180221
  Receipt Date: 20180221
  Transmission Date: 20180509
  Serious: Yes (Other)
  Sender: FDA-Public Use
  Company Number: ALCN2016BR007522

PATIENT
  Age: 80 Year
  Sex: Female
  Weight: 80 kg

DRUGS (2)
  1. VITALUX PLUS OMEGA 03 (ALC) [Suspect]
     Active Substance: MINERALS\OMEGA-3 FATTY ACIDS\VITAMINS
     Indication: PRODUCT USED FOR UNKNOWN INDICATION
     Dosage: EVERY OTHER MONTH
     Route: 065
  2. VITALUX PLUS [Suspect]
     Active Substance: VITAMINS
     Indication: RETINAL DEGENERATION
     Dosage: 1 DF, UNK
     Route: 065

REACTIONS (8)
  - Astigmatism [Unknown]
  - Head injury [Unknown]
  - Weight decreased [Unknown]
  - Meningioma [Unknown]
  - Fall [Unknown]
  - Weight increased [Unknown]
  - Accident [Unknown]
  - Hypoacusis [Unknown]

NARRATIVE: CASE EVENT DATE: 201709
